FAERS Safety Report 4618918-3 (Version None)
Quarter: 2005Q2

REPORT INFORMATION
  Report Type: 
  Country: None (occurrence: None)
  Receive Date: 20050310
  Receipt Date: 20041130
  Transmission Date: 20051028
  Serious: Yes (Hospitalization)
  Sender: FDA-Public Use
  Company Number: F03200400116

PATIENT
  Age: 59 Year
  Sex: Female

DRUGS (4)
  1. ELOXATIN [Suspect]
     Indication: COLON CANCER
     Dosage: TOTAL DOSE ADMINISTERED THIS COURSE 139 MG IV - INTRAVENOUS NOS
     Route: 042
     Dates: start: 20040921, end: 20040921
  2. ERBITUX- CETUXIMAB - SOLUTION [Suspect]
     Indication: COLON CANCER
     Dosage: 656 MG 1/WEEK - INTRAVENOUS NOS
     Route: 042
     Dates: start: 20040921, end: 20040921
  3. 5-FU - SOLUTION [Suspect]
     Indication: COLON CANCER
     Dosage: TOTAL DOSE THIS COURSE 656 MG IN - INTRAVENOUS NOS
     Route: 042
     Dates: start: 20040921, end: 20040921
  4. LEUCOVORIN CALCIUM [Suspect]
     Indication: COLON CANCER
     Dosage: TOTAL DOSE ADMINISTERED THIS COURSE 656 MG IV - INTRAVENOUS NOS
     Route: 042
     Dates: start: 20040921, end: 20040921

REACTIONS (1)
  - DIARRHOEA [None]
